FAERS Safety Report 5115596-4 (Version None)
Quarter: 2006Q3

REPORT INFORMATION
  Report Type: 
  Country: None (occurrence: None)
  Receive Date: 20060925
  Receipt Date: 20060913
  Transmission Date: 20061208
  Serious: Yes (Other)
  Sender: FDA-Public Use
  Company Number: 2006110673

PATIENT
  Age: 34 Year
  Sex: Male
  Weight: 83.9154 kg

DRUGS (8)
  1. NICOTROL [Suspect]
     Indication: SMOKING CESSATION THERAPY
     Dosage: 10-13 CARTRIGDES EVERY DAY, INHALATION
     Route: 055
     Dates: start: 20021024, end: 20060101
  2. METHADONE HCL [Concomitant]
  3. OXYCODONE HCL [Concomitant]
  4. ESOMEPRAZOLE (ESOMEPRAZOLE) [Concomitant]
  5. PANTOPRAZOLE SODIUM [Concomitant]
  6. MORPHINE [Concomitant]
  7. DIAZEPAM [Concomitant]
  8. OMEPRAZOLE [Concomitant]

REACTIONS (2)
  - EAR INFECTION [None]
  - TYMPANIC MEMBRANE PERFORATION [None]
